FAERS Safety Report 12601028 (Version 1)
Quarter: 2016Q3

REPORT INFORMATION
  Report Type: Spontaneous
  Country: None (occurrence: US)
  Receive Date: 20160728
  Receipt Date: 20160728
  Transmission Date: 20161109
  Serious: No
  Sender: FDA-Public Use
  Company Number: US-BIOGEN-2016BI00270933

PATIENT
  Sex: Female

DRUGS (1)
  1. TECFIDERA [Suspect]
     Active Substance: DIMETHYL FUMARATE
     Indication: MULTIPLE SCLEROSIS
     Route: 048
     Dates: start: 20160120

REACTIONS (7)
  - Nausea [Unknown]
  - Feeling hot [Unknown]
  - Asthenia [Unknown]
  - Loss of consciousness [Unknown]
  - Flushing [Unknown]
  - Drug dose omission [Unknown]
  - Suspiciousness [Unknown]
